FAERS Safety Report 4281725-8 (Version None)
Quarter: 2004Q1

REPORT INFORMATION
  Report Type: 
  Country: None (occurrence: None)
  Receive Date: 20040112
  Receipt Date: 20030915
  Transmission Date: 20041129
  Serious: No
  Sender: FDA-Public Use
  Company Number: PHEH2003US08446

PATIENT
  Age: 77 Year
  Sex: Female
  Weight: 77.1 kg

DRUGS (1)
  1. ELIDEL [Suspect]
     Indication: BLEPHARITIS
     Dosage: TOPICAL
     Route: 061
     Dates: start: 20030804, end: 20030901

REACTIONS (1)
  - SICCA SYNDROME [None]
